FAERS Safety Report 9159393 (Version 2)
Quarter: 2013Q1

REPORT INFORMATION
  Report Type: Spontaneous
  Country: FR (occurrence: FR)
  Receive Date: 20130313
  Receipt Date: 20130314
  Transmission Date: 20140127
  Serious: Yes (Other)
  Sender: FDA-Public Use
  Company Number: PHHY2013FR023385

PATIENT
  Age: 59 Year
  Sex: Male
  Weight: 80 kg

DRUGS (1)
  1. TASIGNA [Suspect]
     Indication: CHRONIC MYELOID LEUKAEMIA
     Dosage: 400 MG, BID
     Dates: start: 20120208, end: 20130226

REACTIONS (4)
  - Peripheral artery stenosis [Unknown]
  - Arteriosclerosis [Unknown]
  - Peripheral arterial occlusive disease [Not Recovered/Not Resolved]
  - Intermittent claudication [Not Recovered/Not Resolved]
